FAERS Safety Report 4314639-5 (Version None)
Quarter: 2004Q1

REPORT INFORMATION
  Report Type: 
  Country: None (occurrence: None)
  Receive Date: 20040308
  Receipt Date: 20040223
  Transmission Date: 20041129
  Serious: Yes (Disabling)
  Sender: FDA-Public Use
  Company Number: RS004269-GB

PATIENT
  Age: 47 Year
  Sex: Male

DRUGS (3)
  1. RABEPRAZOLE SODIUM [Suspect]
     Indication: GASTROOESOPHAGEAL REFLUX DISEASE
     Dosage: 20 MG, 1 IN 1 D, ORAL
     Route: 048
     Dates: start: 20040120, end: 20040201
  2. CIPROFLOXACIN [Concomitant]
  3. FLUCONAZOLE [Concomitant]

REACTIONS (1)
  - ATAXIA [None]
